FAERS Safety Report 12108350 (Version 2)
Quarter: 2016Q1

REPORT INFORMATION
  Report Type: Spontaneous
  Country: HU (occurrence: HU)
  Receive Date: 20160224
  Receipt Date: 20160225
  Transmission Date: 20160526
  Serious: Yes (Other)
  Sender: FDA-Public Use
  Company Number: HU-ROCHE-1714904

PATIENT
  Sex: Female
  Weight: 65 kg

DRUGS (3)
  1. AVASTIN [Suspect]
     Active Substance: BEVACIZUMAB
     Indication: OVARIAN CANCER
     Route: 065
     Dates: start: 20131121, end: 20151127
  2. PACLITAXEL. [Concomitant]
     Active Substance: PACLITAXEL
     Indication: OVARIAN CANCER
     Route: 065
     Dates: start: 20131004, end: 20140127
  3. CARBOPLATIN. [Concomitant]
     Active Substance: CARBOPLATIN
     Indication: OVARIAN CANCER
     Route: 065
     Dates: start: 20131004, end: 20140127

REACTIONS (2)
  - Hypertension [Unknown]
  - Renal failure [Unknown]
